FAERS Safety Report 7775468-3 (Version None)
Quarter: 2011Q3

REPORT INFORMATION
  Report Type: 
  Country: None (occurrence: None)
  Receive Date: 20110923
  Receipt Date: 20110919
  Transmission Date: 20111222
  Serious: Yes (Other)
  Sender: FDA-Public Use
  Company Number: CH-ABBOTT-11P-151-0727235-00

PATIENT
  Age: 33 Year
  Sex: Female

DRUGS (1)
  1. HUMIRA [Suspect]
     Indication: ANKYLOSING SPONDYLITIS
     Dates: end: 20090101

REACTIONS (3)
  - ABORTION [None]
  - CERVICAL INCOMPETENCE [None]
  - CHORIOAMNIONITIS [None]
